FAERS Safety Report 25305460 (Version 1)
Quarter: 2025Q2

REPORT INFORMATION
  Report Type: Spontaneous
  Country: US (occurrence: US)
  Receive Date: 20250513
  Receipt Date: 20250513
  Transmission Date: 20250717
  Serious: No
  Sender: MERZ
  Company Number: US-Merz Pharmaceuticals GmbH-2025040000189

PATIENT

DRUGS (2)
  1. XEOMIN [Suspect]
     Active Substance: INCOBOTULINUMTOXINA
     Indication: Skin cosmetic procedure
     Dates: start: 20250203, end: 20250203
  2. XEOMIN [Suspect]
     Active Substance: INCOBOTULINUMTOXINA
     Dates: start: 2025, end: 2025

REACTIONS (2)
  - Therapeutic response decreased [Not Recovered/Not Resolved]
  - Product preparation issue [Unknown]

NARRATIVE: CASE EVENT DATE: 20250101
